FAERS Safety Report 23856795 (Version 1)
Quarter: 2024Q2

REPORT INFORMATION
  Report Type: Spontaneous
  Country: ES (occurrence: ES)
  Receive Date: 20240515
  Receipt Date: 20240515
  Transmission Date: 20240715
  Serious: Yes (Other)
  Sender: FDA-Public Use
  Company Number: ES-AEMPS-1516670

PATIENT
  Age: 54 Year
  Sex: Female
  Weight: 220 kg

DRUGS (3)
  1. AMOXICILLIN [Suspect]
     Active Substance: AMOXICILLIN
     Indication: Infected skin ulcer
     Dosage: 875 MILLIGRAM, FOUR TIMES/DAY
     Route: 048
     Dates: start: 20231223, end: 20231227
  2. PIPERACILLIN AND TAZOBACTAM [Suspect]
     Active Substance: PIPERACILLIN SODIUM\TAZOBACTAM SODIUM
     Indication: Infected skin ulcer
     Dosage: 4 GRAM, FOUR TIMES/DAY
     Route: 042
     Dates: start: 20231223, end: 20231227
  3. Omeprazoe [Concomitant]
     Indication: Prophylaxis against gastrointestinal ulcer
     Dosage: 20 MILLIGRAM, ONCE A DAY
     Route: 048
     Dates: start: 20231221, end: 20231227

REACTIONS (1)
  - Pseudomembranous colitis [Recovered/Resolved]

NARRATIVE: CASE EVENT DATE: 20240103
